FAERS Safety Report 8186217-1 (Version None)
Quarter: 2012Q1

REPORT INFORMATION
  Report Type: 
  Country: None (occurrence: None)
  Receive Date: 20120306
  Receipt Date: 20120301
  Transmission Date: 20120608
  Serious: Yes (Other)
  Sender: FDA-Public Use
  Company Number: US-PFIZER INC-2012056385

PATIENT
  Sex: Female
  Weight: 61.224 kg

DRUGS (3)
  1. CHANTIX [Suspect]
     Indication: SMOKING CESSATION THERAPY
     Dosage: UNK
     Route: 048
     Dates: start: 20110601, end: 20110601
  2. LEVOTHYROXINE [Concomitant]
     Indication: THYROID DISORDER
     Dosage: 50 UG, DAILY
  3. LIOTHYRONINE [Concomitant]
     Indication: THYROID DISORDER
     Dosage: 5 UG, DAILY

REACTIONS (3)
  - DRUG INEFFECTIVE [None]
  - DEPRESSION [None]
  - SUICIDAL IDEATION [None]
